FAERS Safety Report 14547333 (Version 1)
Quarter: 2018Q1

REPORT INFORMATION
  Report Type: Report from Study
  Country: CA (occurrence: CA)
  Receive Date: 20180219
  Receipt Date: 20180219
  Transmission Date: 20180509
  Serious: Yes (Other)
  Sender: FDA-Public Use
  Company Number: PHHY2017CA180283

PATIENT
  Sex: Male

DRUGS (1)
  1. GLEEVEC [Suspect]
     Active Substance: IMATINIB MESYLATE
     Indication: GASTROINTESTINAL STROMAL TUMOUR
     Dosage: 400 MG, QD
     Route: 048
     Dates: start: 20171201

REACTIONS (7)
  - Pollakiuria [Unknown]
  - Abdominal pain [Unknown]
  - Pain [Recovered/Resolved]
  - Neoplasm [Unknown]
  - Asthenia [Unknown]
  - Abdominal distension [Unknown]
  - Fatigue [Unknown]
